FAERS Safety Report 8121117-4 (Version None)
Quarter: 2012Q1

REPORT INFORMATION
  Report Type: 
  Country: None (occurrence: None)
  Receive Date: 20120208
  Receipt Date: 20120130
  Transmission Date: 20120608
  Serious: Yes (Other)
  Sender: FDA-Public Use
  Company Number: JP-BRISTOL-MYERS SQUIBB COMPANY-16364838

PATIENT
  Age: 65 Year
  Sex: Male
  Weight: 76 kg

DRUGS (7)
  1. CADUET [Concomitant]
     Indication: ANGINA PECTORIS
     Dosage: 1DF=1 IN 1 D
     Route: 048
     Dates: start: 20110409
  2. AMARYL [Concomitant]
     Indication: DIABETES MELLITUS
     Dosage: 25JUL11-11SEP11-1MG 1 IN 1 D 12SEP11-.3MG 1 IN 1 DAY:48DAYS
     Route: 048
     Dates: start: 20110725
  3. NORVASC [Concomitant]
     Indication: ANGINA PECTORIS
     Route: 048
     Dates: start: 20100706, end: 20110408
  4. METFORMIN HCL [Suspect]
     Indication: DIABETES MELLITUS
     Dosage: 500MG 23MAY11-26JUN11-35DAYS. 750MG ON 27JUN11-06JAN2012:194DAYS
     Route: 048
     Dates: start: 20110523, end: 20120106
  5. MELBIN [Concomitant]
     Indication: DIABETES MELLITUS
     Route: 048
     Dates: start: 20110409, end: 20110522
  6. ASPIRIN [Concomitant]
     Indication: MYOCARDIAL INFARCTION
     Route: 048
     Dates: start: 20101213
  7. LIPITOR [Concomitant]
     Indication: HYPERCHOLESTEROLAEMIA
     Route: 048
     Dates: start: 20101212, end: 20110408

REACTIONS (1)
  - LIVER DISORDER [None]
